FAERS Safety Report 19738461 (Version 3)
Quarter: 2021Q4

REPORT INFORMATION
  Report Type: Report from Study
  Country: DE (occurrence: DE)
  Receive Date: 20210823
  Receipt Date: 20211019
  Transmission Date: 20220303
  Serious: Yes (Other)
  Sender: FDA-Public Use
  Company Number: DE-002147023-PHHY2018DE029386

PATIENT
  Sex: Female
  Weight: 68 kg

DRUGS (13)
  1. FULVESTRANT [Suspect]
     Active Substance: FULVESTRANT
     Indication: Breast cancer metastatic
     Dosage: 250 MG, QD (EVERY 4 WEEKS)
     Route: 030
     Dates: start: 20190801
  2. FULVESTRANT [Suspect]
     Active Substance: FULVESTRANT
     Dosage: 500 MG, Q4W
     Route: 030
     Dates: start: 20190801, end: 20200604
  3. LETROZOLE [Suspect]
     Active Substance: LETROZOLE
     Indication: Breast cancer metastatic
     Dosage: 2.5 MG, QD
     Route: 048
     Dates: start: 20180118, end: 20190725
  4. LETROZOLE [Suspect]
     Active Substance: LETROZOLE
     Dosage: 3 MG, QD
     Route: 048
     Dates: start: 20180118, end: 20190725
  5. KISQALI [Suspect]
     Active Substance: RIBOCICLIB
     Indication: Breast cancer metastatic
     Dosage: 600 MG (21 DAY CYCLE WITH 7 DAY PAUSE)
     Route: 048
     Dates: start: 20180118, end: 20180513
  6. KISQALI [Suspect]
     Active Substance: RIBOCICLIB
     Dosage: 600 MG (21 DAY CYCLE WITH 7 DAY PAUSE)
     Route: 048
     Dates: start: 20180522, end: 20180830
  7. KISQALI [Suspect]
     Active Substance: RIBOCICLIB
     Dosage: 600 MG (21 DAY CYCLE WITH 7 DAY PAUSE)
     Route: 048
     Dates: start: 20180913, end: 20190725
  8. KISQALI [Suspect]
     Active Substance: RIBOCICLIB
     Dosage: 600 MILLIGRAM, QD (600 MG, QD (21 DAY CYCLE WITH 7 DAY PAUSE)
     Route: 048
     Dates: start: 20190726, end: 20190926
  9. KISQALI [Suspect]
     Active Substance: RIBOCICLIB
     Dosage: 200 MILLIGRAM, QD (200 MG, QD (21 DAY CYCLE WITH 7 DAY PAUSE))
     Route: 048
     Dates: start: 20200320, end: 20200408
  10. KISQALI [Suspect]
     Active Substance: RIBOCICLIB
     Dosage: 400 MILLIGRAM, QD (21 DAY CYCLE WITH 7 DAY PAUSE)
     Route: 048
     Dates: start: 20190927, end: 20200319
  11. KISQALI [Suspect]
     Active Substance: RIBOCICLIB
     Dosage: 400 MILLIGRAM, QD (400 MG, QD 21 DAY CYCLE WITH 7 DAY PAUSE)
     Route: 048
     Dates: start: 20200409, end: 20200630
  12. KISQALI [Suspect]
     Active Substance: RIBOCICLIB
     Dosage: 600 MG, QD (21 DAY CYCLE WITH 7 DAY PAUSE
     Route: 048
     Dates: start: 20190725, end: 20190926
  13. AFINITOR [Suspect]
     Active Substance: EVEROLIMUS
     Indication: Breast cancer
     Dosage: 5 MILLIGRAM, QD
     Route: 048
     Dates: start: 20210415

REACTIONS (3)
  - Leukopenia [Not Recovered/Not Resolved]
  - Hypertension [Not Recovered/Not Resolved]
  - Abdominal pain upper [Recovering/Resolving]

NARRATIVE: CASE EVENT DATE: 20180212
